FAERS Safety Report 6090687-2 (Version None)
Quarter: 2009Q1

REPORT INFORMATION
  Report Type: 
  Country: None (occurrence: None)
  Receive Date: 20090224
  Receipt Date: 20090120
  Transmission Date: 20090719
  Serious: No
  Sender: FDA-Public Use
  Company Number: US-ABBOTT-09P-163-0499147-00

PATIENT
  Sex: Female

DRUGS (4)
  1. SIMCOR [Suspect]
     Indication: BLOOD CHOLESTEROL INCREASED
     Dosage: 1 IN 1 D AT BEDTIIME
     Route: 048
     Dates: start: 20090113, end: 20090119
  2. BLOOD PRESSURE PILL [Concomitant]
     Indication: BLOOD PRESSURE
  3. WATER PILL [Concomitant]
     Indication: DRUG USE FOR UNKNOWN INDICATION
     Dosage: PILL
  4. VITAMINS [Concomitant]
     Indication: DRUG USE FOR UNKNOWN INDICATION

REACTIONS (1)
  - NAUSEA [None]
